FAERS Safety Report 7434028-4 (Version None)
Quarter: 2011Q2

REPORT INFORMATION
  Report Type: 
  Country: None (occurrence: None)
  Receive Date: 20110425
  Receipt Date: 20110329
  Transmission Date: 20111010
  Serious: No
  Sender: FDA-Public Use
  Company Number: US-B.I. PHARMACEUTICALS,INC./RIDGEFIELD-2011-BP-09522BP

PATIENT
  Age: 56 Year
  Sex: Female

DRUGS (10)
  1. PRISTIQ [Concomitant]
     Indication: DEPRESSION
     Dosage: 100 MG
     Route: 048
     Dates: start: 20090101
  2. NEURONTIN [Concomitant]
     Indication: NEUROPATHY PERIPHERAL
     Dosage: 600 MG
     Route: 048
     Dates: start: 20110316
  3. MOBIC [Suspect]
     Indication: INFLAMMATION
     Dosage: 15 MG
     Route: 048
     Dates: start: 20110316, end: 20110328
  4. COSAQUIN [Concomitant]
     Indication: ARTHRALGIA
     Route: 048
     Dates: start: 20100801
  5. LANTUS [Concomitant]
     Indication: TYPE 1 DIABETES MELLITUS
     Dosage: 34 MG
     Route: 058
     Dates: start: 19810101
  6. MOBIC [Suspect]
     Indication: ARTHRITIS
  7. VASOTEC [Concomitant]
     Indication: PROPHYLAXIS
     Dosage: 5 MG
     Route: 048
     Dates: start: 19810101
  8. LIPITOR [Concomitant]
     Indication: BLOOD CHOLESTEROL INCREASED
     Dosage: 20 MG
     Route: 048
     Dates: start: 20060101
  9. HUMALOG [Concomitant]
     Indication: TYPE 1 DIABETES MELLITUS
     Dates: start: 19810101
  10. CALCIUM [Concomitant]
     Indication: PROPHYLAXIS
     Dosage: 1200 MG
     Route: 048
     Dates: start: 20020101

REACTIONS (4)
  - BLISTER [None]
  - SKIN EXFOLIATION [None]
  - ARTHRALGIA [None]
  - BURNING SENSATION [None]
